FAERS Safety Report 13704557 (Version 6)
Quarter: 2018Q3

REPORT INFORMATION
  Report Type: Report from Study
  Country: US (occurrence: US)
  Receive Date: 20170630
  Receipt Date: 20180917
  Transmission Date: 20181010
  Serious: Yes (Hospitalization)
  Sender: FDA-Public Use
  Company Number: US-SUN PHARMACEUTICAL INDUSTRIES LTD-2017US-144187

PATIENT
  Age: 68 Year
  Sex: Male
  Weight: 85.8 kg

DRUGS (2)
  1. SONIDEGIB [Suspect]
     Active Substance: SONIDEGIB
     Indication: NEOPLASM MALIGNANT
     Dosage: 200 MG 28 DAYS CYCLE
     Route: 048
     Dates: start: 20170501
  2. AZACITIDINE COMP?AZAC [Suspect]
     Active Substance: AZACITIDINE
     Indication: NEOPLASM MALIGNANT
     Dosage: 75 MG/M2, 7D IN 28 DAYS CYCLE
     Route: 058
     Dates: start: 20170501

REACTIONS (2)
  - Hypokalaemia [Recovered/Resolved]
  - Pneumonia [Recovered/Resolved]

NARRATIVE: CASE EVENT DATE: 20170613
